FAERS Safety Report 8276744-0 (Version None)
Quarter: 2012Q2

REPORT INFORMATION
  Report Type: 
  Country: None (occurrence: None)
  Receive Date: 20120405
  Receipt Date: 20120328
  Transmission Date: 20120825
  Serious: Yes (Other)
  Sender: FDA-Public Use
  Company Number: 2012SP013670

PATIENT
  Age: 20 Year
  Sex: Female
  Weight: 54.5 kg

DRUGS (1)
  1. IMPLANON [Suspect]
     Indication: CONTRACEPTION
     Dosage: 1 DF
     Dates: start: 20100824, end: 20120312

REACTIONS (5)
  - ACNE [None]
  - OVARIAN CYST [None]
  - DYSAESTHESIA [None]
  - PARAESTHESIA [None]
  - NEURALGIA [None]
